FAERS Safety Report 5272644-9 (Version None)
Quarter: 2007Q1

REPORT INFORMATION
  Report Type: 
  Country: None (occurrence: None)
  Receive Date: 20061219
  Receipt Date: 20060913
  Transmission Date: 20070707
  Serious: Yes (Hospitalization, Other)
  Sender: FDA-Public Use
  Company Number: US-JNJFOC-20060904340

PATIENT
  Age: 35 Year
  Sex: Female

DRUGS (4)
  1. ORTHO EVRA [Suspect]
     Indication: CONTRACEPTION
     Dosage: TRANSDERMAL
     Route: 062
     Dates: start: 20041101, end: 20050214
  2. ORTHO EVRA [Suspect]
     Indication: CONTRACEPTION
     Dosage: TRANSDERMAL
     Route: 062
     Dates: start: 20050201, end: 20050302
  3. WELLBUTRIN [Concomitant]
  4. FIORINAL [Concomitant]

REACTIONS (2)
  - MENORRHAGIA [None]
  - PULMONARY EMBOLISM [None]
